FAERS Safety Report 9982059 (Version 2)
Quarter: 2014Q1

REPORT INFORMATION
  Report Type: Report from Study
  Country: US (occurrence: US)
  Receive Date: 20140307
  Receipt Date: 20140307
  Transmission Date: 20141002
  Serious: No
  Sender: FDA-Public Use
  Company Number: US-ABBVIE-13P-163-1159449-00

PATIENT
  Age: 42 Year
  Sex: Female
  Weight: 63.56 kg

DRUGS (13)
  1. HUMIRA [Suspect]
     Indication: RHEUMATOID ARTHRITIS
     Route: 058
     Dates: end: 201308
  2. HUMIRA [Suspect]
     Route: 058
     Dates: start: 201308, end: 201309
  3. HUMIRA [Suspect]
     Route: 058
     Dates: start: 20131007
  4. LUNESTA [Concomitant]
     Indication: INSOMNIA
  5. FOLIC ACID [Concomitant]
     Indication: RHEUMATOID ARTHRITIS
  6. METHOTREXATE [Concomitant]
     Indication: RHEUMATOID ARTHRITIS
  7. TRAMADOL [Concomitant]
     Indication: RHEUMATOID ARTHRITIS
  8. CYCLOBENZAPRINE [Concomitant]
     Indication: MUSCLE SPASMS
  9. DICYCLOMINE [Concomitant]
     Indication: IRRITABLE BOWEL SYNDROME
  10. NUVIGIL [Concomitant]
     Indication: FATIGUE
  11. VICODIN [Concomitant]
     Indication: INTERVERTEBRAL DISC PROTRUSION
  12. BETAMETHASONE [Concomitant]
     Indication: ECZEMA
  13. FLECTOR PATCH [Concomitant]
     Indication: PAIN

REACTIONS (1)
  - Herpes zoster [Recovered/Resolved]
